FAERS Safety Report 5899379-3 (Version None)
Quarter: 2008Q3

REPORT INFORMATION
  Report Type: 
  Country: None (occurrence: None)
  Receive Date: 20080924
  Receipt Date: 20080918
  Transmission Date: 20090109
  Serious: Yes (Hospitalization, Disabling, Other)
  Sender: FDA-Public Use
  Company Number: OMPQ-PR-0809S-0838

PATIENT
  Age: 53 Year
  Sex: Male

DRUGS (2)
  1. OMNIPAQUE 140 [Suspect]
     Indication: NECK PAIN
     Dosage: 2 ML, SINGLE DOSE, I.T.
     Route: 038
     Dates: start: 20080909, end: 20080909
  2. DEPO-MEDROL [Concomitant]

REACTIONS (7)
  - HAEMATOMA [None]
  - HYPOTENSION [None]
  - INFUSION RELATED REACTION [None]
  - MUSCULAR WEAKNESS [None]
  - NUCLEAR MAGNETIC RESONANCE IMAGING BRAIN ABNORMAL [None]
  - PARALYSIS [None]
  - SPINAL CORD INFARCTION [None]
